FAERS Safety Report 8022205-3 (Version None)
Quarter: 2012Q1

REPORT INFORMATION
  Report Type: 
  Country: None (occurrence: None)
  Receive Date: 20120104
  Receipt Date: 20111229
  Transmission Date: 20120608
  Serious: Yes (Other)
  Sender: FDA-Public Use
  Company Number: US-BAYER-2011-088280

PATIENT
  Sex: Female

DRUGS (2)
  1. MIRENA [Suspect]
     Indication: MENSTRUAL CYCLE MANAGEMENT
  2. MIRENA [Suspect]
     Indication: CONTRACEPTION
     Dosage: 20 MCG/24HR, CONT
     Route: 015
     Dates: start: 20061001

REACTIONS (14)
  - ABDOMINAL PAIN [None]
  - UTERINE PAIN [None]
  - LOSS OF LIBIDO [None]
  - HEADACHE [None]
  - IRRITABILITY [None]
  - MOOD SWINGS [None]
  - CONSTIPATION [None]
  - FEELING ABNORMAL [None]
  - ABDOMINAL DISCOMFORT [None]
  - WEIGHT INCREASED [None]
  - DYSSTASIA [None]
  - DIZZINESS [None]
  - DEVICE DISLOCATION [None]
  - BREAST ENLARGEMENT [None]
